FAERS Safety Report 13093839 (Version 1)
Quarter: 2017Q1

REPORT INFORMATION
  Report Type: Report from Study
  Country: CA (occurrence: CA)
  Receive Date: 20170106
  Receipt Date: 20170106
  Transmission Date: 20170428
  Serious: Yes (Life-Threatening, Other)
  Sender: FDA-Public Use
  Company Number: PHHY2017CA001253

PATIENT
  Sex: Female

DRUGS (1)
  1. ACLASTA [Suspect]
     Active Substance: ZOLEDRONIC ACID
     Indication: OSTEOPOROSIS
     Dosage: 5 MG, UNK
     Route: 042
     Dates: start: 20150609

REACTIONS (9)
  - Multiple organ dysfunction syndrome [Unknown]
  - Scab [Unknown]
  - Pancreatitis acute [Unknown]
  - Nausea [Unknown]
  - Feeling abnormal [Unknown]
  - Alopecia [Unknown]
  - Renal impairment [Unknown]
  - Weight decreased [Unknown]
  - Lethargy [Unknown]
